FAERS Safety Report 6370985-5 (Version None)
Quarter: 2009Q3

REPORT INFORMATION
  Report Type: 
  Country: None (occurrence: None)
  Receive Date: 20090921
  Receipt Date: 20090921
  Transmission Date: 20100115
  Serious: No
  Sender: FDA-Public Use
  Company Number: None

PATIENT
  Age: 35 Year
  Sex: Male
  Weight: 86.1834 kg

DRUGS (2)
  1. BACTRIM DS [Suspect]
     Indication: ABSCESS
     Dosage: 800-600 PO BID
     Route: 048
     Dates: start: 20090824, end: 20090908
  2. BACTRIM DS [Suspect]
     Indication: ABSCESS
     Dosage: 800-600 PO BID
     Route: 048
     Dates: start: 20090915, end: 20090916

REACTIONS (2)
  - RASH [None]
  - URTICARIA [None]
